FAERS Safety Report 9273758 (Version 3)
Quarter: 2013Q2

REPORT INFORMATION
  Report Type: Spontaneous
  Country: US (occurrence: US)
  Receive Date: 20130506
  Receipt Date: 20130617
  Transmission Date: 20140414
  Serious: Yes (Death, Hospitalization)
  Sender: FDA-Public Use
  Company Number: US-GILEAD-2013-0074622

PATIENT
  Age: 84 Year
  Sex: Male

DRUGS (19)
  1. LETAIRIS [Suspect]
     Indication: PULMONARY ARTERIAL HYPERTENSION
     Route: 048
     Dates: start: 20120905
  2. ALBUTEROL                          /00139501/ [Concomitant]
  3. BUDESONIDE [Concomitant]
  4. CARBIDOPA-LEVODOPA-B [Concomitant]
  5. CEFEPIME [Concomitant]
  6. LEXAPRO [Concomitant]
  7. HYDRALAZINE [Concomitant]
  8. INSULIN [Concomitant]
  9. LACTOBACILLUS [Concomitant]
  10. LEVOTHYROXINE [Concomitant]
  11. NAMENDA [Concomitant]
  12. METOPROLOL [Concomitant]
  13. METRONIDAZOLE [Concomitant]
  14. MULTIVITAMIN                       /00097801/ [Concomitant]
  15. OMEGA-3 FATTY ACIDS [Concomitant]
  16. PYRIDOSTIGMINE [Concomitant]
  17. THIAMINE [Concomitant]
  18. VANCOMYCIN [Concomitant]
  19. WARFARIN [Concomitant]

REACTIONS (6)
  - Death [Fatal]
  - Hypothermia [Unknown]
  - Mental status changes [Unknown]
  - Hypokalaemia [Unknown]
  - Hypotension [Unknown]
  - Transient ischaemic attack [Unknown]
